FAERS Safety Report 16742997 (Version 1)
Quarter: 2019Q3

REPORT INFORMATION
  Report Type: Spontaneous
  Country: CH (occurrence: CH)
  Receive Date: 20190827
  Receipt Date: 20190827
  Transmission Date: 20191005
  Serious: Yes (Hospitalization)
  Sender: FDA-Public Use
  Company Number: CH-ABBVIE-19K-151-2896461-00

PATIENT
  Age: 73 Year
  Sex: Male
  Weight: 80.8 kg

DRUGS (6)
  1. LUCRIN DEPOT [Suspect]
     Active Substance: LEUPROLIDE ACETATE
     Indication: PROSTATE CANCER
     Route: 058
     Dates: start: 20190118
  2. XARELTO [Concomitant]
     Active Substance: RIVAROXABAN
     Indication: PRODUCT USED FOR UNKNOWN INDICATION
     Route: 048
     Dates: start: 2015
  3. EPLERENONE. [Concomitant]
     Active Substance: EPLERENONE
     Dosage: DOSE INCREASED
     Route: 048
  4. EPLERENONE. [Concomitant]
     Active Substance: EPLERENONE
     Indication: PRODUCT USED FOR UNKNOWN INDICATION
     Route: 048
  5. ASPIRIN CARDIO [Concomitant]
     Active Substance: ASPIRIN
     Indication: PRODUCT USED FOR UNKNOWN INDICATION
     Route: 048
  6. INEGY [Concomitant]
     Active Substance: EZETIMIBE\SIMVASTATIN
     Indication: PRODUCT USED FOR UNKNOWN INDICATION
     Dosage: 10/20MG
     Route: 048

REACTIONS (11)
  - Asthenia [Recovering/Resolving]
  - Ventricular hypokinesia [Unknown]
  - Hypothyroidism [Unknown]
  - Chest X-ray abnormal [Unknown]
  - Cardiomegaly [Unknown]
  - Peripheral venous disease [Unknown]
  - Cardiac failure [Recovering/Resolving]
  - Tachycardia [Recovered/Resolved]
  - Rales [Unknown]
  - Ventricular dysfunction [Unknown]
  - N-terminal prohormone brain natriuretic peptide increased [Unknown]

NARRATIVE: CASE EVENT DATE: 2019
